FAERS Safety Report 5887748-7 (Version None)
Quarter: 2008Q3

REPORT INFORMATION
  Report Type: 
  Country: None (occurrence: None)
  Receive Date: 20080918
  Receipt Date: 20080910
  Transmission Date: 20090109
  Serious: Yes (Death, Hospitalization)
  Sender: FDA-Public Use
  Company Number: FR-WYE-H04867008

PATIENT
  Sex: Female

DRUGS (8)
  1. CORDARONE [Suspect]
     Indication: ATRIAL FIBRILLATION
     Route: 048
     Dates: start: 20080609
  2. INSULIN [Concomitant]
     Indication: TYPE 1 DIABETES MELLITUS
     Dosage: DOSE AND FREQUENCY NOT SPECIFIED
     Route: 065
     Dates: start: 19980101
  3. COUMADIN [Interacting]
     Indication: ATRIAL FIBRILLATION
     Route: 048
     Dates: start: 20080609, end: 20080615
  4. AMOXICILLIN [Interacting]
     Indication: URINARY TRACT INFECTION
     Route: 048
     Dates: start: 20080610, end: 20080618
  5. AMOXICILLIN [Interacting]
     Indication: ESCHERICHIA INFECTION
  6. ASPIRIN [Interacting]
     Route: 048
     Dates: end: 20080605
  7. ASPIRIN [Interacting]
     Route: 048
     Dates: start: 20080606, end: 20080614
  8. CALCIPARINE [Interacting]
     Route: 058
     Dates: start: 20080605

REACTIONS (4)
  - DRUG INTERACTION [None]
  - MUSCLE HAEMORRHAGE [None]
  - SHOCK [None]
  - SUBCUTANEOUS HAEMATOMA [None]
